FAERS Safety Report 7948215-X (Version None)
Quarter: 2011Q4

REPORT INFORMATION
  Report Type: 
  Country: None (occurrence: None)
  Receive Date: 20111121
  Receipt Date: 20111107
  Transmission Date: 20120403
  Serious: Yes (Death, Hospitalization, Other)
  Sender: FDA-Public Use
  Company Number: 2011MA016116

PATIENT
  Age: 79 Year
  Sex: Male
  Weight: 68.0396 kg

DRUGS (4)
  1. DIGOXIN [Suspect]
     Indication: BLOOD PRESSURE
     Dosage: 0.125 MG;QD;PO
     Route: 048
     Dates: start: 20060607, end: 20070914
  2. LOVENOX [Concomitant]
  3. COUMADIN [Concomitant]
  4. ASPIRIN [Suspect]

REACTIONS (14)
  - CAROTID ARTERY STENOSIS [None]
  - PAIN [None]
  - FALL [None]
  - DYSPNOEA [None]
  - MENTAL DISORDER [None]
  - CARDIOACTIVE DRUG LEVEL DECREASED [None]
  - CARDIAC DISORDER [None]
  - DIZZINESS [None]
  - MULTIPLE INJURIES [None]
  - CARDIOVASCULAR DISORDER [None]
  - EJECTION FRACTION DECREASED [None]
  - ECONOMIC PROBLEM [None]
  - EMOTIONAL DISORDER [None]
  - CEREBROVASCULAR ACCIDENT [None]
